FAERS Safety Report 12824854 (Version 1)
Quarter: 2016Q4

REPORT INFORMATION
  Report Type: Spontaneous
  Country: US (occurrence: US)
  Receive Date: 20161007
  Receipt Date: 20161007
  Transmission Date: 20170207
  Serious: No
  Sender: FDA-Public Use
  Company Number: US-NEPHRON PHARMACEUTICALS CORPORATION-1058086

PATIENT
  Age: 60 Year
  Sex: Female

DRUGS (5)
  1. ALBUTEROL SULFATE INHALATION SOLUTION, 0.083% [Suspect]
     Active Substance: ALBUTEROL SULFATE
     Indication: COUGH
     Route: 055
  2. TOPIRAMATE. [Concomitant]
     Active Substance: TOPIRAMATE
  3. HUMIRA [Concomitant]
     Active Substance: ADALIMUMAB
  4. ATROVENT [Concomitant]
     Active Substance: IPRATROPIUM BROMIDE
  5. DUONEB [Concomitant]
     Active Substance: ALBUTEROL SULFATE\IPRATROPIUM BROMIDE

REACTIONS (2)
  - Heart rate increased [Unknown]
  - Tremor [Unknown]
